FAERS Safety Report 8874827 (Version 1)
Quarter: 2012Q4

REPORT INFORMATION
  Report Type: 
  Country: US (occurrence: US)
  Receive Date: 20121030
  Receipt Date: 20121030
  Transmission Date: 20130627
  Serious: Yes (Disabling, Other)
  Sender: FDA-Public Use
  Company Number: US-SANOFI-AVENTIS-2012SA076973

PATIENT
  Age: 79 Year
  Sex: Female
  Weight: 83 kg

DRUGS (8)
  1. PLAVIX [Suspect]
     Indication: CARDIAC DISORDER
     Route: 048
  2. ATORVASTATIN CALCIUM [Suspect]
     Indication: CHOLESTEROL
     Route: 065
  3. ZOCOR [Suspect]
     Indication: CHOLESTEROL
     Route: 065
  4. GABAPENTIN [Suspect]
     Indication: ARTHRITIS
     Route: 065
  5. CELEBREX [Suspect]
     Indication: ARTHRITIS
     Route: 065
     Dates: start: 20120917, end: 20120920
  6. ASPIRIN [Concomitant]
     Indication: CARDIAC DISORDER
  7. ATENOLOL [Concomitant]
     Indication: CARDIAC DISORDER
  8. HYDROCHLOROTHIAZIDE [Concomitant]
     Indication: SWELLING OF LEGS

REACTIONS (13)
  - Weight increased [Unknown]
  - Muscle injury [Unknown]
  - Abasia [Unknown]
  - Mental disorder [Unknown]
  - Limb deformity [Not Recovered/Not Resolved]
  - Gait disturbance [Not Recovered/Not Resolved]
  - Pain in extremity [Not Recovered/Not Resolved]
  - Oedema peripheral [Not Recovered/Not Resolved]
  - Abdominal pain upper [Not Recovered/Not Resolved]
  - Hallucination [Unknown]
  - Nausea [Not Recovered/Not Resolved]
  - Off label use [Unknown]
  - Drug ineffective [Unknown]
